FAERS Safety Report 4738519-6 (Version None)
Quarter: 2005Q3

REPORT INFORMATION
  Report Type: 
  Country: None (occurrence: None)
  Receive Date: 20050803
  Receipt Date: 20050727
  Transmission Date: 20060218
  Serious: Yes (Other)
  Sender: FDA-Public Use
  Company Number: AU_050708729

PATIENT
  Age: 18 Year
  Sex: Female
  Weight: 49 kg

DRUGS (3)
  1. STRATTERA [Suspect]
     Indication: ABNORMAL BEHAVIOUR
     Dosage: 60 MG DAY
     Dates: start: 20040816
  2. VALPROIC ACID [Concomitant]
  3. LAMOTRIGINE [Concomitant]

REACTIONS (2)
  - DISEASE RECURRENCE [None]
  - PETIT MAL EPILEPSY [None]
